FAERS Safety Report 12912514 (Version 1)
Quarter: 2016Q4

REPORT INFORMATION
  Report Type: Report from Study
  Country: RU (occurrence: RU)
  Receive Date: 20161104
  Receipt Date: 20161104
  Transmission Date: 20170207
  Serious: Yes (Life-Threatening)
  Sender: FDA-Public Use
  Company Number: RU-ASTRAZENECA-2016SF15463

PATIENT
  Age: 18080 Day
  Sex: Female
  Weight: 85 kg

DRUGS (3)
  1. ATORVASTATIN [Concomitant]
     Active Substance: ATORVASTATIN
     Dates: start: 20130705
  2. FASLODEX [Suspect]
     Active Substance: FULVESTRANT
     Indication: BREAST CANCER
     Dosage: 500
     Route: 030
     Dates: start: 20130110, end: 20131114
  3. CTKI258 [Suspect]
     Active Substance: DOVITINIB LACTATE
     Indication: BREAST CANCER
     Dosage: 500 MG, QD (5 DAYS ON/2 DAYS OFF)
     Route: 048
     Dates: start: 20130110, end: 20131111

REACTIONS (1)
  - Laryngospasm [Recovered/Resolved]

NARRATIVE: CASE EVENT DATE: 20131114
